FAERS Safety Report 13753658 (Version 1)
Quarter: 2017Q3

REPORT INFORMATION
  Report Type: Report from Study
  Country: KR (occurrence: KR)
  Receive Date: 20170713
  Receipt Date: 20170713
  Transmission Date: 20171127
  Serious: Yes (Hospitalization)
  Sender: FDA-Public Use
  Company Number: KR-ARIAD-2015KR004589

PATIENT
  Age: 41 Year
  Sex: Female
  Weight: 53 kg

DRUGS (19)
  1. CODEINE [Concomitant]
     Active Substance: CODEINE
     Indication: COUGH
     Dosage: UNK
     Route: 048
     Dates: start: 20150107, end: 20150526
  2. LIDOMEX [Concomitant]
     Active Substance: PREDNISOLONE VALERATE ACETATE
     Indication: PRURITUS
     Dosage: UNK
     Route: 061
     Dates: start: 20150225, end: 20150526
  3. EBASTEL [Concomitant]
     Active Substance: EBASTINE
     Indication: PRURITUS
     Dosage: UNK
     Route: 048
     Dates: start: 20150225, end: 20150428
  4. METHYLON [Concomitant]
     Active Substance: METHYLPREDNISOLONE
     Indication: RASH ERYTHEMATOUS
     Dosage: UNK
     Route: 048
     Dates: start: 20150227, end: 20150428
  5. MACPERAN [Concomitant]
     Active Substance: METOCLOPRAMIDE HYDROCHLORIDE
     Indication: PROPHYLAXIS OF NAUSEA AND VOMITING
     Dosage: UNK
     Route: 048
     Dates: start: 20141113, end: 20150331
  6. AP26113 [Suspect]
     Active Substance: BRIGATINIB
     Indication: LUNG ADENOCARCINOMA STAGE IV
     Dosage: 90 MG, QD
     Route: 048
     Dates: start: 20141113, end: 20141113
  7. AP26113 [Suspect]
     Active Substance: BRIGATINIB
     Dosage: 90 MG, QD
     Route: 048
     Dates: start: 20150211, end: 20150224
  8. AP26113 [Suspect]
     Active Substance: BRIGATINIB
     Dosage: 60 MG, QD
     Route: 048
     Dates: start: 20161108, end: 20170104
  9. AP26113 [Suspect]
     Active Substance: BRIGATINIB
     Dosage: 60 MG, QD
     Route: 048
     Dates: start: 20150227, end: 20150305
  10. AP26113 [Suspect]
     Active Substance: BRIGATINIB
     Dosage: 60 MG, QD
     Route: 048
     Dates: start: 20160913, end: 20161106
  11. MOTILITONE [Concomitant]
     Active Substance: HERBALS
     Indication: DYSPEPSIA
     Dosage: UNK
     Route: 048
     Dates: start: 20141126, end: 20150331
  12. ERDOS [Concomitant]
     Indication: COUGH
     Dosage: UNK
     Route: 048
     Dates: start: 20150107, end: 20150526
  13. AP26113 [Suspect]
     Active Substance: BRIGATINIB
     Dosage: 90 MG, QD
     Route: 048
     Dates: start: 20141115, end: 20150203
  14. AP26113 [Suspect]
     Active Substance: BRIGATINIB
     Dosage: 60 MG, QD
     Route: 048
     Dates: start: 20150307, end: 20160829
  15. SYNTHROID [Concomitant]
     Active Substance: LEVOTHYROXINE SODIUM
     Indication: HYPOTHYROIDISM
     Dosage: UNK
     Route: 048
  16. XYZAL [Concomitant]
     Active Substance: LEVOCETIRIZINE DIHYDROCHLORIDE
     Indication: PRURITUS
     Dosage: UNK
     Route: 048
     Dates: start: 20150225, end: 20150428
  17. NASEA [Concomitant]
     Active Substance: RAMOSETRON HYDROCHLORIDE
     Indication: PROPHYLAXIS OF NAUSEA AND VOMITING
     Dosage: UNK
     Route: 048
     Dates: start: 20141113, end: 20150331
  18. PHENIRAMIN [Concomitant]
     Indication: PRURITUS
     Dosage: UNK
     Route: 042
     Dates: start: 20150225, end: 20150226
  19. SOLU-MEDROL [Concomitant]
     Active Substance: METHYLPREDNISOLONE SODIUM SUCCINATE
     Indication: PRURITUS
     Dosage: UNK
     Route: 042
     Dates: start: 20150225, end: 20150227

REACTIONS (2)
  - Rash erythematous [Recovered/Resolved]
  - Rash erythematous [Recovered/Resolved]

NARRATIVE: CASE EVENT DATE: 20150225
